FAERS Safety Report 24590100 (Version 1)
Quarter: 2024Q4

REPORT INFORMATION
  Report Type: Spontaneous
  Country: GB (occurrence: GB)
  Receive Date: 20241107
  Receipt Date: 20241107
  Transmission Date: 20250115
  Serious: Yes (Life-Threatening, Other)
  Sender: GLAXOSMITHKLINE
  Company Number: None

PATIENT

DRUGS (3)
  1. LAMOTRIGINE [Suspect]
     Active Substance: LAMOTRIGINE
     Indication: Epilepsy
     Dosage: 25 MG, QD, AT NIGHT
     Route: 065
     Dates: start: 20241009, end: 20241027
  2. EPILIM [Concomitant]
     Active Substance: VALPROATE SODIUM
     Indication: Epilepsy
     Dosage: UNK UNK, BID; 1000MG MORNING, 500MG NIGHT
     Route: 065
  3. LEVOTHYROXINE [Concomitant]
     Active Substance: LEVOTHYROXINE
     Indication: Hypothyroidism
     Dosage: UNK
     Route: 065

REACTIONS (8)
  - Haemophagocytic lymphohistiocytosis [Recovering/Resolving]
  - Malaise [Unknown]
  - Diarrhoea [Recovered/Resolved]
  - Hyperhidrosis [Unknown]
  - Rash [Recovered/Resolved]
  - Tremor [Unknown]
  - Pyrexia [Unknown]
  - Palpitations [Unknown]

NARRATIVE: CASE EVENT DATE: 20241025
